FAERS Safety Report 9536974 (Version 2)
Quarter: 2013Q4

REPORT INFORMATION
  Report Type: Spontaneous
  Country: FR (occurrence: FR)
  Receive Date: 20130919
  Receipt Date: 20131114
  Transmission Date: 20140711
  Serious: Yes (Life-Threatening, Hospitalization, Disabling)
  Sender: FDA-Public Use
  Company Number: FR-SANOFI-AVENTIS-2013SA092045

PATIENT
  Age: 64 Year
  Sex: Male
  Weight: 76.5 kg

DRUGS (2)
  1. CEREZYME [Suspect]
     Indication: GAUCHER^S DISEASE
     Route: 042
     Dates: start: 200407
  2. ACETAMINOPHEN [Concomitant]
     Indication: PAIN

REACTIONS (3)
  - Glioblastoma [Not Recovered/Not Resolved]
  - Facial nerve disorder [Unknown]
  - Adverse event [Unknown]
